FAERS Safety Report 17203912 (Version 1)
Quarter: 2019Q4

REPORT INFORMATION
  Report Type: Spontaneous
  Country: US (occurrence: US)
  Receive Date: 20191226
  Receipt Date: 20191226
  Transmission Date: 20200122
  Serious: No
  Sender: FDA-Public Use
  Company Number: US-BAUSCH-BL-2019-058756

PATIENT
  Sex: Female

DRUGS (1)
  1. LUMIFY [Suspect]
     Active Substance: BRIMONIDINE TARTRATE
     Indication: OCULAR HYPERAEMIA
     Dosage: ONCE OR TWICE A DAY
     Route: 047

REACTIONS (3)
  - Incorrect dose administered [Unknown]
  - Patient dissatisfaction with treatment [Unknown]
  - Product packaging quantity issue [Unknown]
